FAERS Safety Report 8923697 (Version 1)
Quarter: 2012Q4

REPORT INFORMATION
  Report Type: Spontaneous
  Country: US (occurrence: None)
  Receive Date: 20121109
  Receipt Date: 20121109
  Transmission Date: 20130627
  Serious: Yes (Other)
  Sender: FDA-Public Use
  Company Number: 2012S1000243

PATIENT
  Sex: Male
  Weight: 69 kg

DRUGS (1)
  1. CUBICIN [Suspect]
     Dosage: 4 mg/kg; q48h;u

REACTIONS (1)
  - Blood creatine phosphokinase increased [None]
